FAERS Safety Report 10037446 (Version 1)
Quarter: 2014Q1

REPORT INFORMATION
  Report Type: Spontaneous
  Country: US (occurrence: None)
  Receive Date: 20140325
  Receipt Date: 20140325
  Transmission Date: 20141002
  Serious: Yes (Other)
  Sender: FDA-Public Use
  Company Number: None

PATIENT
  Age: 40 Year
  Sex: Male
  Weight: 90.72 kg

DRUGS (1)
  1. ZOLPIDEM TARTRATE (AMBIEN) [Suspect]
     Indication: STRESS
     Dosage: 10-20 MG DAILY?1-2 PILLS ADAY?EVERYDAY AT BEDTIME ?BY MOUTH
     Route: 048
     Dates: start: 1995, end: 1998

REACTIONS (3)
  - Memory impairment [None]
  - Abnormal behaviour [None]
  - Sexual abuse [None]
